FAERS Safety Report 17496356 (Version 1)
Quarter: 2020Q1

REPORT INFORMATION
  Report Type: Spontaneous
  Country: US (occurrence: US)
  Receive Date: 20200304
  Receipt Date: 20200304
  Transmission Date: 20200409
  Serious: Yes (Hospitalization)
  Sender: FDA-Public Use
  Company Number: None

PATIENT
  Age: 60 Year
  Sex: Male

DRUGS (6)
  1. METHOTREXATE. [Concomitant]
     Active Substance: METHOTREXATE
  2. SIMVASTATIN. [Concomitant]
     Active Substance: SIMVASTATIN
  3. LOSARTAN. [Concomitant]
     Active Substance: LOSARTAN
  4. FOLIC ACID. [Concomitant]
     Active Substance: FOLIC ACID
  5. HUMIRA [Suspect]
     Active Substance: ADALIMUMAB
     Indication: RHEUMATOID ARTHRITIS
     Dosage: ?          OTHER FREQUENCY:EVERY WEEK;?
     Route: 058
  6. PANTOPRAZOLE [Concomitant]
     Active Substance: PANTOPRAZOLE

REACTIONS (2)
  - Cardiac pacemaker insertion [None]
  - Therapy cessation [None]
